FAERS Safety Report 10295518 (Version 1)
Quarter: 2014Q3

REPORT INFORMATION
  Report Type: Spontaneous
  Country: US (occurrence: US)
  Receive Date: 20140710
  Receipt Date: 20140710
  Transmission Date: 20150326
  Serious: No
  Sender: FDA-Public Use
  Company Number: US-PURDUE-USA-2014-0113227

PATIENT
  Age: 30 Year
  Sex: Female

DRUGS (1)
  1. BUTRANS [Suspect]
     Active Substance: BUPRENORPHINE
     Indication: MIGRAINE
     Route: 062

REACTIONS (5)
  - Pruritus [Unknown]
  - Excoriation [Unknown]
  - Skin exfoliation [Unknown]
  - Drug ineffective [Unknown]
  - Scratch [Unknown]
